FAERS Safety Report 10194981 (Version 1)
Quarter: 2014Q2

REPORT INFORMATION
  Report Type: Spontaneous
  Country: US (occurrence: US)
  Receive Date: 20140526
  Receipt Date: 20140526
  Transmission Date: 20141212
  Serious: No
  Sender: FDA-Public Use
  Company Number: US-PFIZER INC-2014143069

PATIENT
  Age: 56 Year
  Sex: Female
  Weight: 86.17 kg

DRUGS (3)
  1. FLAGYL [Suspect]
     Indication: CLOSTRIDIUM DIFFICILE INFECTION
     Dosage: UNK
  2. VANCOMYCIN [Suspect]
     Indication: CLOSTRIDIUM DIFFICILE INFECTION
     Dosage: UNK
  3. TESSALON [Concomitant]
     Indication: COUGH
     Dosage: UNK
     Dates: start: 201306

REACTIONS (1)
  - Drug ineffective [Unknown]
